FAERS Safety Report 14711486 (Version 1)
Quarter: 2018Q2

REPORT INFORMATION
  Report Type: Spontaneous
  Country: US (occurrence: US)
  Receive Date: 20180403
  Receipt Date: 20180403
  Transmission Date: 20180711
  Serious: Yes (Hospitalization, Other)
  Sender: FDA-Public Use
  Company Number: US-MYLANLABS-2018M1019531

PATIENT
  Sex: Female
  Weight: 57 kg

DRUGS (5)
  1. OXYCODONE [Concomitant]
     Active Substance: OXYCODONE
     Indication: PAIN
     Dosage: 20 MG,INITIALLYB AVERAGED 4 A DAY ,NOW 6 A DAY
  2. LORAZEPAM TABLETS USP [Suspect]
     Active Substance: LORAZEPAM
     Indication: PANIC ATTACK
     Dosage: UNK
     Dates: start: 20180319
  3. LORAZEPAM TABLETS USP [Suspect]
     Active Substance: LORAZEPAM
     Indication: ANXIETY
     Dosage: UNK
     Route: 048
     Dates: start: 20180219
  4. LORAZEPAM TABLETS USP [Suspect]
     Active Substance: LORAZEPAM
     Indication: BLOOD PRESSURE ABNORMAL
  5. FENTANYL MYLAN [Concomitant]
     Active Substance: FENTANYL
     Indication: ANALGESIC THERAPY
     Dosage: 75 ?G, UNK

REACTIONS (16)
  - Abdominal pain upper [Recovering/Resolving]
  - Gastrointestinal pain [Recovering/Resolving]
  - Pruritus [Recovering/Resolving]
  - Nonspecific reaction [Recovering/Resolving]
  - Wrong technique in product usage process [Not Recovered/Not Resolved]
  - Seizure [Recovering/Resolving]
  - Decreased appetite [Recovering/Resolving]
  - Blood pressure abnormal [Recovering/Resolving]
  - Eye irritation [Recovering/Resolving]
  - Feeling abnormal [Recovering/Resolving]
  - Eye pain [Recovered/Resolved]
  - Off label use [Not Recovered/Not Resolved]
  - Burning sensation [Recovering/Resolving]
  - Pain [Recovering/Resolving]
  - Blood pressure increased [Recovering/Resolving]
  - Malaise [Recovering/Resolving]

NARRATIVE: CASE EVENT DATE: 2018
